FAERS Safety Report 7178456-3 (Version None)
Quarter: 2010Q4

REPORT INFORMATION
  Report Type: 
  Country: None (occurrence: None)
  Receive Date: 20101220
  Receipt Date: 20101214
  Transmission Date: 20110411
  Serious: Yes (Hospitalization)
  Sender: FDA-Public Use
  Company Number: BE-ABBOTT-10P-013-0689905-00

PATIENT
  Sex: Female

DRUGS (7)
  1. HUMIRA [Suspect]
     Indication: PSORIATIC ARTHROPATHY
     Dates: start: 20081114
  2. HUMIRA [Suspect]
  3. MEDROL [Concomitant]
     Indication: INFLAMMATION
     Dosage: 64MG DAILY
  4. MEDROL [Concomitant]
     Dosage: 8MG DAILY
  5. MEDROL [Concomitant]
     Dosage: 64MG DAILY
  6. TAVANIC [Concomitant]
     Indication: PRODUCT USED FOR UNKNOWN INDICATION
  7. TIBERAL [Concomitant]
     Indication: PRODUCT USED FOR UNKNOWN INDICATION
     Dosage: 500

REACTIONS (2)
  - CROHN'S DISEASE [None]
  - PSORIASIS [None]
